FAERS Safety Report 18744816 (Version 1)
Quarter: 2021Q1

REPORT INFORMATION
  Report Type: Other
  Country: IN (occurrence: IN)
  Receive Date: 20210115
  Receipt Date: 20210115
  Transmission Date: 20210419
  Serious: Yes (Death, Other)
  Sender: FDA-Public Use
  Company Number: IN-ROCHE-2748397

PATIENT

DRUGS (1)
  1. TENECTEPLASE [Suspect]
     Active Substance: TENECTEPLASE
     Indication: THROMBOLYSIS
     Route: 065

REACTIONS (11)
  - Death [Fatal]
  - Arrhythmia [Unknown]
  - Gastrointestinal haemorrhage [Unknown]
  - Cardiac failure congestive [Unknown]
  - Urinary tract infection [Unknown]
  - Pneumonia aspiration [Unknown]
  - Hyponatraemia [Unknown]
  - Periorbital haematoma [Unknown]
  - Haemorrhage intracranial [Unknown]
  - Decubitus ulcer [Unknown]
  - Peripheral ischaemia [Unknown]
